FAERS Safety Report 8525536-3 (Version None)
Quarter: 2012Q3

REPORT INFORMATION
  Report Type: 
  Country: None (occurrence: None)
  Receive Date: 20120720
  Receipt Date: 20120710
  Transmission Date: 20120928
  Serious: No
  Sender: FDA-Public Use
  Company Number: US-ASTRAZENECA-2012SE47804

PATIENT
  Age: 57 Year
  Sex: Male

DRUGS (2)
  1. ATACAND [Suspect]
     Route: 048
  2. TOPROL-XL [Suspect]
     Route: 048

REACTIONS (1)
  - VISUAL IMPAIRMENT [None]
